FAERS Safety Report 5700909-2 (Version None)
Quarter: 2008Q2

REPORT INFORMATION
  Report Type: 
  Country: None (occurrence: None)
  Receive Date: 20080410
  Receipt Date: 20080403
  Transmission Date: 20081010
  Serious: Yes (Other)
  Sender: FDA-Public Use
  Company Number: B0442080B

PATIENT
  Age: 28 Year
  Sex: Male

DRUGS (11)
  1. BLINDED TRIAL MEDICATION [Suspect]
     Indication: HIV INFECTION
     Route: 048
  2. COMBIVIR [Suspect]
     Indication: HIV INFECTION
     Dosage: 1TAB TWICE PER DAY
     Route: 048
     Dates: end: 20061130
  3. EFAVIRENZ [Suspect]
     Indication: HIV INFECTION
     Dosage: 600MG PER DAY
     Route: 048
     Dates: end: 20061130
  4. CO-TRIMOXAZOLE [Suspect]
     Route: 065
  5. RIFAMPICIN [Concomitant]
  6. ISONIAZID [Concomitant]
  7. PYRAZINAMIDE [Concomitant]
  8. ETHAMBUTOL HYDROCHLORIDE [Concomitant]
  9. VITAMIN B1 [Concomitant]
  10. VITAMIN B6 [Concomitant]
  11. VITAMIN B-12 [Concomitant]

REACTIONS (9)
  - ANAEMIA [None]
  - COUGH [None]
  - DIARRHOEA [None]
  - HEADACHE [None]
  - HYPERBILIRUBINAEMIA [None]
  - PANCYTOPENIA [None]
  - PYREXIA [None]
  - VOMITING [None]
  - WEIGHT DECREASED [None]
